FAERS Safety Report 9754381 (Version 1)
Quarter: 2013Q4

REPORT INFORMATION
  Report Type: Spontaneous
  Country: US (occurrence: US)
  Receive Date: 20131213
  Receipt Date: 20131213
  Transmission Date: 20140711
  Serious: No
  Sender: FDA-Public Use
  Company Number: US-009507513-1312USA003380

PATIENT
  Age: 60 Year
  Sex: Female

DRUGS (1)
  1. MIRALAX [Suspect]
     Indication: ABDOMINAL DISTENSION
     Dosage: UNK, UNKNOWN
     Route: 048
     Dates: start: 20131125

REACTIONS (2)
  - Off label use [Unknown]
  - Drug ineffective for unapproved indication [Unknown]
